FAERS Safety Report 18427994 (Version 1)
Quarter: 2020Q4

REPORT INFORMATION
  Report Type: Spontaneous
  Country: DE (occurrence: DE)
  Receive Date: 20201026
  Receipt Date: 20201026
  Transmission Date: 20210114
  Serious: Yes (Hospitalization)
  Sender: FDA-Public Use
  Company Number: DE-ALNYLAM PHARMACEUTICALS, INC.-ALN-2020-001921

PATIENT

DRUGS (1)
  1. GIVLAARI [Suspect]
     Active Substance: GIVOSIRAN SODIUM
     Indication: PORPHYRIA ACUTE
     Route: 058

REACTIONS (6)
  - Pain [Unknown]
  - Hypoaesthesia [Unknown]
  - Porphyrins urine decreased [Unknown]
  - Pyrexia [Unknown]
  - Gastric ulcer [Unknown]
  - Gastritis [Unknown]

NARRATIVE: CASE EVENT DATE: 20201014
